FAERS Safety Report 8088945-5 (Version None)
Quarter: 2012Q1

REPORT INFORMATION
  Report Type: 
  Country: None (occurrence: None)
  Receive Date: 20120128
  Receipt Date: 20110629
  Transmission Date: 20120608
  Serious: No
  Sender: FDA-Public Use
  Company Number: US-ABBOTT-11P-163-0734948-00

PATIENT
  Age: 31 Year
  Sex: Female

DRUGS (9)
  1. HUMIRA [Suspect]
     Indication: RHEUMATOID ARTHRITIS
     Dates: start: 20110609
  2. CENTRUM VITAMIN [Concomitant]
     Indication: VITAMIN SUPPLEMENTATION
  3. CALCIUM [Concomitant]
     Indication: VITAMIN SUPPLEMENTATION
  4. METHOTREXATE [Concomitant]
     Indication: RHEUMATOID ARTHRITIS
  5. PROZAC [Concomitant]
     Indication: DEPRESSION
  6. PROZAC [Concomitant]
     Indication: ANXIETY
  7. CLARITIN [Concomitant]
     Indication: SEASONAL ALLERGY
     Dosage: OVER THE COUNTER
  8. FOLIC ACID [Concomitant]
     Indication: VITAMIN SUPPLEMENTATION
  9. VITAMIN D [Concomitant]
     Indication: VITAMIN SUPPLEMENTATION

REACTIONS (4)
  - INJECTION SITE PAIN [None]
  - DEVICE MALFUNCTION [None]
  - WRONG TECHNIQUE IN DRUG USAGE PROCESS [None]
  - INCORRECT DOSE ADMINISTERED [None]
